FAERS Safety Report 10045535 (Version 1)
Quarter: 2014Q1

REPORT INFORMATION
  Report Type: Spontaneous
  Country: US (occurrence: None)
  Receive Date: 20140306
  Receipt Date: 20140306
  Transmission Date: 20141002
  Serious: Yes (Other)
  Sender: FDA-Public Use
  Company Number: 163-21880-13060581

PATIENT
  Age: 76 Year
  Sex: Male

DRUGS (7)
  1. REVLIMID [Suspect]
     Indication: PLASMA CELL MYELOMA
     Dosage: 25MG, 21 IN 21 D, PO
     Route: 048
     Dates: start: 200812
  2. ZOMETA (ZOLEDRONIC ACID) (INJECTION) [Concomitant]
  3. ZYVOX (LINEZOLID) [Concomitant]
  4. AMLODIPINE BESYLATE (AMLODIPINE BESILATE) [Concomitant]
  5. FUROSEMIDE (FUROSEMIDE) (TABLETS) [Concomitant]
  6. INDOMETHACIN (INDOMETACIN) [Concomitant]
  7. DOXYCYCLINE HYCLATE (DOXYCYCLINE HYCLATE) [Concomitant]

REACTIONS (1)
  - Spinal compression fracture [None]
